FAERS Safety Report 7945545-2 (Version None)
Quarter: 2011Q4

REPORT INFORMATION
  Report Type: 
  Country: None (occurrence: None)
  Receive Date: 20111125
  Receipt Date: 20111115
  Transmission Date: 20120403
  Serious: Yes (Disabling)
  Sender: FDA-Public Use
  Company Number: DKLU1073601

PATIENT
  Age: 2 Year
  Sex: Male

DRUGS (4)
  1. SABRIL [Suspect]
     Indication: INFANTILE SPASMS
     Dosage: SEE IMAGE
     Route: 048
     Dates: start: 20100501
  2. SABRIL [Suspect]
     Indication: INFANTILE SPASMS
     Dosage: SEE IMAGE
     Route: 048
     Dates: start: 20100401
  3. SABRIL [Suspect]
     Indication: INFANTILE SPASMS
     Dosage: SEE IMAGE
     Route: 048
     Dates: start: 20110501, end: 20110601
  4. SABRIL [Suspect]
     Indication: INFANTILE SPASMS
     Dosage: SEE IMAGE
     Route: 048
     Dates: start: 20110201

REACTIONS (1)
  - AUTISM [None]
